FAERS Safety Report 9749979 (Version 1)
Quarter: 2013Q4

REPORT INFORMATION
  Report Type: Report from Study
  Country: MX (occurrence: MX)
  Receive Date: 20131212
  Receipt Date: 20131212
  Transmission Date: 20140711
  Serious: Yes (Other)
  Sender: FDA-Public Use
  Company Number: PHHY2013MX145597

PATIENT
  Age: 68 Year
  Sex: Female

DRUGS (2)
  1. CO-DIOVAN [Suspect]
     Indication: HYPERTENSION
     Dosage: 0.5 DF (160/12.5MG), DAILY
     Route: 048
     Dates: end: 20131207
  2. CO-DIOVAN [Suspect]
     Dosage: 1 DF (160/12.5MG), DAILY
     Route: 048
     Dates: start: 20131208

REACTIONS (9)
  - Arrhythmia [Recovered/Resolved]
  - Blood pressure increased [Recovered/Resolved]
  - Dizziness [Recovering/Resolving]
  - Syncope [Recovered/Resolved]
  - Vomiting [Recovered/Resolved]
  - Chest pain [Recovered/Resolved]
  - Pain in extremity [Recovered/Resolved]
  - Feeling abnormal [Recovered/Resolved]
  - Wrong technique in drug usage process [Recovered/Resolved]
